FAERS Safety Report 9547868 (Version 1)
Quarter: 2013Q3

REPORT INFORMATION
  Report Type: Spontaneous
  Country: US (occurrence: None)
  Receive Date: 20130719
  Receipt Date: 20130719
  Transmission Date: 20140515
  Serious: Yes (Hospitalization)
  Sender: FDA-Public Use
  Company Number: 2012BAX008977

PATIENT
  Age: 83 Year
  Sex: Female
  Weight: 53.5 kg

DRUGS (3)
  1. CYCLOPHOSPHAMIDE FOR INJECTION, USP (CYCLOPHOSPHAMIDE) [Suspect]
     Indication: CHRONIC LYMPHOCYTIC LEUKAEMIA
     Dosage: ONE DOSE
     Route: 042
     Dates: start: 20110913, end: 20110913
  2. RITUXIMAB (RITUXIMAB) [Suspect]
     Indication: CHRONIC LYMPHOCYTIC LEUKAEMIA
     Dosage: ONE DOSE
     Route: 042
     Dates: start: 20110913, end: 20110913
  3. FLUDARABINE (FLUDARABINE) [Suspect]
     Indication: CHRONIC LYMPHOCYTIC LEUKAEMIA
     Dosage: ONE DOSE
     Route: 042
     Dates: start: 20110913, end: 20110913

REACTIONS (2)
  - Pancytopenia [None]
  - Anaemia [None]
